FAERS Safety Report 13797060 (Version 2)
Quarter: 2017Q3

REPORT INFORMATION
  Report Type: Spontaneous
  Country: DE (occurrence: DE)
  Receive Date: 20170727
  Receipt Date: 20170912
  Transmission Date: 20171127
  Serious: Yes (Hospitalization)
  Sender: FDA-Public Use
  Company Number: DE-ROCHE-1969056

PATIENT
  Sex: Female

DRUGS (1)
  1. LUCENTIS [Suspect]
     Active Substance: RANIBIZUMAB
     Indication: DIABETIC RETINAL OEDEMA
     Dosage: 10 MG/ML
     Route: 065
     Dates: start: 201604

REACTIONS (6)
  - Rash [Unknown]
  - Hypersensitivity [Unknown]
  - Genital rash [Unknown]
  - Pruritus [Unknown]
  - Hypertensive crisis [Unknown]
  - Pruritus genital [Unknown]

NARRATIVE: CASE EVENT DATE: 201707
